FAERS Safety Report 15535866 (Version 1)
Quarter: 2018Q4

REPORT INFORMATION
  Report Type: Spontaneous
  Country: US (occurrence: US)
  Receive Date: 20181022
  Receipt Date: 20181022
  Transmission Date: 20190205
  Serious: No
  Sender: FDA-Public Use
  Company Number: US-PFIZER INC-2018424908

PATIENT

DRUGS (1)
  1. NEURONTIN [Suspect]
     Active Substance: GABAPENTIN
     Dosage: UNK (NEURONTIN/GABAPENTIN-EIGHT OR NINE YEARS/TOOK WELL OVER 7 MILLION MG)

REACTIONS (20)
  - Irritability [Unknown]
  - Weight increased [Unknown]
  - Headache [Unknown]
  - Somnolence [Unknown]
  - Fatigue [Unknown]
  - Depression [Unknown]
  - Nervousness [Unknown]
  - Myalgia [Unknown]
  - Lethargy [Unknown]
  - Judgement impaired [Unknown]
  - Aggression [Unknown]
  - Diarrhoea [Unknown]
  - Muscle spasms [Unknown]
  - Dysarthria [Unknown]
  - Product use in unapproved indication [Unknown]
  - Amnesia [Unknown]
  - Clumsiness [Unknown]
  - Dyspepsia [Unknown]
  - Dry mouth [Unknown]
  - Tremor [Unknown]
